FAERS Safety Report 9696878 (Version 1)
Quarter: 2013Q4

REPORT INFORMATION
  Report Type: Spontaneous
  Country: US (occurrence: US)
  Receive Date: 20131119
  Receipt Date: 20131119
  Transmission Date: 20140711
  Serious: No
  Sender: FDA-Public Use
  Company Number: US-GILEAD-2007-0013893

PATIENT
  Sex: Female
  Weight: 53.52 kg

DRUGS (6)
  1. LETAIRIS [Suspect]
     Indication: PULMONARY ARTERIAL HYPERTENSION
     Route: 048
  2. PROTONIX [Concomitant]
     Route: 048
  3. PREDNISONE [Concomitant]
     Route: 048
  4. SENSIPAR [Concomitant]
     Route: 048
  5. CLONIDINE HCL [Concomitant]
     Route: 048
  6. RENAGEL [Concomitant]
     Route: 048

REACTIONS (1)
  - Liver function test abnormal [Unknown]
